FAERS Safety Report 8032384-X (Version None)
Quarter: 2012Q1

REPORT INFORMATION
  Report Type: 
  Country: None (occurrence: None)
  Receive Date: 20120109
  Receipt Date: 20120109
  Transmission Date: 20120608
  Serious: Yes (Death, Life-Threatening, Hospitalization)
  Sender: FDA-Public Use
  Company Number: None

PATIENT
  Age: 62 Year
  Sex: Male
  Weight: 91.4 kg

DRUGS (2)
  1. PIPERACILLIN AND TAZOBACTAM [Suspect]
     Indication: PNEUMONIA
     Dosage: 4.5 GM TID IV
     Route: 042
     Dates: start: 20111020, end: 20111027
  2. CEFEPIME [Suspect]
     Indication: PNEUMONIA
     Dosage: 2 GM TID IV
     Route: 042
     Dates: start: 20111128, end: 20111129

REACTIONS (1)
  - STEVENS-JOHNSON SYNDROME [None]
